FAERS Safety Report 10938881 (Version 3)
Quarter: 2015Q1

REPORT INFORMATION
  Report Type: Report from Study
  Country: FR (occurrence: FR)
  Receive Date: 20150321
  Receipt Date: 20150323
  Transmission Date: 20150721
  Serious: Yes (Death, Hospitalization, Other)
  Sender: FDA-Public Use
  Company Number: FR-ABBVIE-15K-056-1362800-00

PATIENT
  Age: 61 Year
  Sex: Female
  Weight: 75 kg

DRUGS (1)
  1. HUMIRA [Suspect]
     Active Substance: ADALIMUMAB
     Indication: PSORIASIS
     Route: 058
     Dates: start: 20140304

REACTIONS (9)
  - Leukocytosis [Unknown]
  - Device related infection [Unknown]
  - Enterococcal sepsis [Fatal]
  - Staphylococcal sepsis [Fatal]
  - Procedural pain [Unknown]
  - Completed suicide [Fatal]
  - Inflammation [Unknown]
  - Device dislocation [Unknown]
  - Postoperative wound complication [Unknown]

NARRATIVE: CASE EVENT DATE: 2014
